FAERS Safety Report 9253857 (Version 2)
Quarter: 2013Q2

REPORT INFORMATION
  Report Type: Spontaneous
  Country: AU (occurrence: AU)
  Receive Date: 20130425
  Receipt Date: 20130625
  Transmission Date: 20140414
  Serious: Yes (Death)
  Sender: FDA-Public Use
  Company Number: AU-GENZYME-FABR-1003199

PATIENT
  Sex: Male
  Weight: 59 kg

DRUGS (1)
  1. FABRAZYME [Suspect]
     Indication: FABRY^S DISEASE
     Dosage: 0.59 MG/KG, Q2W
     Route: 042
     Dates: start: 20090519, end: 2011

REACTIONS (1)
  - Cardiac failure [Fatal]
